FAERS Safety Report 14766340 (Version 2)
Quarter: 2018Q2

REPORT INFORMATION
  Report Type: Report from Study
  Country: CN (occurrence: CN)
  Receive Date: 20180416
  Receipt Date: 20180501
  Transmission Date: 20180711
  Serious: Yes (Other)
  Sender: FDA-Public Use
  Company Number: PHHY2017CN181005

PATIENT
  Age: 40 Year
  Sex: Male

DRUGS (12)
  1. AMLODIPIN BESYLATE AND BENAZEPRIL HYDROCHLORI [Concomitant]
     Active Substance: AMLODIPINE BESYLATE\BENAZEPRIL HYDROCHLORIDE
     Indication: BLOOD PRESSURE ABNORMAL
     Dosage: 12.5 MG, BID
     Route: 048
     Dates: start: 20170921, end: 20171005
  2. FUROSEMIDE. [Concomitant]
     Active Substance: FUROSEMIDE
     Indication: PRODUCT USED FOR UNKNOWN INDICATION
     Dosage: 40 MG, QD
     Route: 042
     Dates: start: 20170924, end: 20170927
  3. COENZYME COMPLEX [Concomitant]
     Active Substance: UNSPECIFIED INGREDIENT
     Indication: PRODUCT USED FOR UNKNOWN INDICATION
     Dosage: 1800 MG, QD
     Route: 042
     Dates: start: 20180221, end: 20180224
  4. MYFORTIC [Suspect]
     Active Substance: MYCOPHENOLATE SODIUM
     Dosage: 1080 MG, QD
     Route: 065
     Dates: start: 20170926, end: 20180213
  5. MOXIFLOXACIN HYDROCHLORIDE. [Concomitant]
     Active Substance: MOXIFLOXACIN HYDROCHLORIDE
     Indication: INFECTION PROPHYLAXIS
     Dosage: 400 MG, QD
     Route: 042
     Dates: start: 20170917, end: 20170929
  6. OLMESARTAN MEDOXOMIL. [Concomitant]
     Active Substance: OLMESARTAN MEDOXOMIL
     Indication: BLOOD PRESSURE ABNORMAL
     Dosage: 20 MG, BID
     Route: 048
     Dates: start: 20170921, end: 20171009
  7. BASILIXIMAB [Suspect]
     Active Substance: BASILIXIMAB
     Indication: PRODUCT USED FOR UNKNOWN INDICATION
     Dosage: 20 MG, QD
     Route: 065
     Dates: start: 20170917, end: 20170917
  8. MEGLUMINE ADENOSINE CYCLOPHOSPHATE [Concomitant]
     Indication: PRODUCT USED FOR UNKNOWN INDICATION
     Dosage: 180 MG, QD
     Route: 042
     Dates: start: 20170917, end: 20170929
  9. MYFORTIC [Suspect]
     Active Substance: MYCOPHENOLATE SODIUM
     Indication: RENAL TRANSPLANT
     Dosage: 2160 MG, QD
     Route: 065
     Dates: start: 20170918, end: 20170925
  10. MYFORTIC [Suspect]
     Active Substance: MYCOPHENOLATE SODIUM
     Dosage: 720 MG, QD
     Route: 065
     Dates: start: 20180214
  11. BICYCLOL [Concomitant]
     Active Substance: BICYCLOL
     Indication: PRODUCT USED FOR UNKNOWN INDICATION
     Dosage: 25 MG, TID
     Route: 048
     Dates: start: 20170929
  12. VALGANCICLOVIR HYDROCHLORIDE. [Concomitant]
     Active Substance: VALGANCICLOVIR HYDROCHLORIDE
     Indication: PRODUCT USED FOR UNKNOWN INDICATION
     Dosage: 450 MG, QD
     Route: 048
     Dates: start: 20171005, end: 20171204

REACTIONS (6)
  - Alanine aminotransferase increased [Unknown]
  - Constipation [Recovered/Resolved]
  - Nausea [Recovered/Resolved]
  - Incision site pain [Recovered/Resolved]
  - Neutrophil count increased [Recovered/Resolved]
  - Drug-induced liver injury [Recovered/Resolved]

NARRATIVE: CASE EVENT DATE: 20170918
